FAERS Safety Report 7443404-5 (Version None)
Quarter: 2011Q2

REPORT INFORMATION
  Report Type: 
  Country: None (occurrence: None)
  Receive Date: 20110428
  Receipt Date: 20110422
  Transmission Date: 20111010
  Serious: Yes (Other)
  Sender: FDA-Public Use
  Company Number: US-PFIZER INC-2011090395

PATIENT
  Age: 67 Year
  Sex: Male

DRUGS (3)
  1. SITAGLIPTIN [Suspect]
  2. GLYNASE [Suspect]
     Dosage: UNK
  3. ACTOS [Suspect]
     Dosage: UNK

REACTIONS (1)
  - BLOOD GLUCOSE ABNORMAL [None]
